FAERS Safety Report 17988849 (Version 1)
Quarter: 2020Q3

REPORT INFORMATION
  Report Type: Spontaneous
  Country: US (occurrence: US)
  Receive Date: 20200707
  Receipt Date: 20200707
  Transmission Date: 20201103
  Serious: Yes (Death, Hospitalization, Other)
  Sender: FDA-Public Use
  Company Number: US-PFIZER INC-2020259574

PATIENT
  Sex: Male

DRUGS (7)
  1. ULTRACET [Suspect]
     Active Substance: ACETAMINOPHEN\TRAMADOL HYDROCHLORIDE
     Dosage: UNK
  2. OXYCODONE [Suspect]
     Active Substance: OXYCODONE
     Dosage: UNK
  3. MORPHINE SULFATE. [Suspect]
     Active Substance: MORPHINE SULFATE
     Dosage: UNK
  4. MOTRIN [Suspect]
     Active Substance: IBUPROFEN
     Dosage: UNK
  5. HYDROCODONE [Suspect]
     Active Substance: HYDROCODONE
     Dosage: UNK
  6. INDOCIN [Suspect]
     Active Substance: INDOMETHACIN
     Dosage: UNK
  7. PERCOCET [OXYCODONE HYDROCHLORIDE;OXYCODONE TEREPHTHALATE;PARACETAMOL] [Suspect]
     Active Substance: ACETAMINOPHEN\OXYCODONE HYDROCHLORIDE\OXYCODONE TEREPHTHALATE
     Dosage: UNK

REACTIONS (12)
  - Overdose [Fatal]
  - Rotator cuff syndrome [Unknown]
  - Ligament rupture [Unknown]
  - Arthralgia [Unknown]
  - Abdominal pain [Unknown]
  - Imprisonment [Unknown]
  - Drug dependence [Unknown]
  - Hepatitis [Unknown]
  - Viral pericarditis [Fatal]
  - Dependence [Fatal]
  - Pancreatitis [Unknown]
  - Weight decreased [Unknown]

NARRATIVE: CASE EVENT DATE: 2006
